FAERS Safety Report 24996702 (Version 1)
Quarter: 2025Q1

REPORT INFORMATION
  Report Type: Spontaneous
  Country: ES (occurrence: ES)
  Receive Date: 20250221
  Receipt Date: 20250221
  Transmission Date: 20250409
  Serious: Yes (Other)
  Sender: PURDUE
  Company Number: ES-PURDUE-USA-2025-0315627

PATIENT
  Sex: Male

DRUGS (1)
  1. OXYCODONE HYDROCHLORIDE [Suspect]
     Active Substance: OXYCODONE HYDROCHLORIDE
     Indication: Product used for unknown indication
     Dosage: 10ML/H
     Route: 042
     Dates: start: 20250130

REACTIONS (3)
  - Coordination abnormal [Unknown]
  - Speech disorder [Unknown]
  - Incorrect drug administration rate [Unknown]

NARRATIVE: CASE EVENT DATE: 20250130
